FAERS Safety Report 7186654-8 (Version None)
Quarter: 2010Q4

REPORT INFORMATION
  Report Type: 
  Country: None (occurrence: None)
  Receive Date: 20101222
  Receipt Date: 20100624
  Transmission Date: 20110411
  Serious: No
  Sender: FDA-Public Use
  Company Number: US-AMGEN-TCS420450

PATIENT

DRUGS (1)
  1. ENBREL [Suspect]
     Indication: RHEUMATOID ARTHRITIS
     Dosage: 25 MG, QWK
     Route: 058

REACTIONS (6)
  - DRUG INEFFECTIVE [None]
  - FINGER DEFORMITY [None]
  - KNEE DEFORMITY [None]
  - WEIGHT BEARING DIFFICULTY [None]
  - WHEELCHAIR USER [None]
  - WRIST DEFORMITY [None]
